FAERS Safety Report 7777050-0 (Version None)
Quarter: 2011Q3

REPORT INFORMATION
  Report Type: 
  Country: None (occurrence: None)
  Receive Date: 20110926
  Receipt Date: 20110926
  Transmission Date: 20111222
  Serious: No
  Sender: FDA-Public Use
  Company Number: None

PATIENT
  Age: 72 Year
  Sex: Male
  Weight: 113.39 kg

DRUGS (2)
  1. LOVASTATIN [Suspect]
     Indication: LIPIDS ABNORMAL
     Dosage: 1
     Route: 048
     Dates: start: 20110807, end: 20110924
  2. TRILIPIX [Concomitant]

REACTIONS (2)
  - MUSCLE SPASMS [None]
  - MYALGIA [None]
